FAERS Safety Report 5888234-0 (Version None)
Quarter: 2008Q3

REPORT INFORMATION
  Report Type: 
  Country: None (occurrence: None)
  Receive Date: 20080916
  Receipt Date: 20080916
  Transmission Date: 20090109
  Serious: No
  Sender: FDA-Public Use
  Company Number: None

PATIENT
  Sex: Female
  Weight: 72.5755 kg

DRUGS (1)
  1. SEROQUEL [Suspect]
     Indication: INSOMNIA
     Dosage: 300 MG  H.S.  OTHER
     Route: 050
     Dates: start: 20020106, end: 20070915

REACTIONS (3)
  - CATARACT [None]
  - DIABETES MELLITUS [None]
  - PANIC ATTACK [None]
